FAERS Safety Report 5234163-5 (Version None)
Quarter: 2007Q1

REPORT INFORMATION
  Report Type: 
  Country: None (occurrence: None)
  Receive Date: 20070207
  Receipt Date: 20070206
  Transmission Date: 20070707
  Serious: Yes (Hospitalization)
  Sender: FDA-Public Use
  Company Number: 0701-068

PATIENT
  Age: 11 Month
  Sex: Female
  Weight: 5.8968 kg

DRUGS (2)
  1. ALBUTEROL SULATE [Suspect]
     Indication: ASTHMA
     Dosage: Q1-3H; NEBULIZER/SINCE MAY 06
  2. ALBUTEROL SULATE [Suspect]

REACTIONS (5)
  - DRUG DOSE OMISSION [None]
  - MALAISE [None]
  - NAUSEA [None]
  - VOMITING [None]
  - WEIGHT INCREASED [None]
